FAERS Safety Report 9472268 (Version 3)
Quarter: 2013Q4

REPORT INFORMATION
  Report Type: Report from Study
  Country: AU (occurrence: AU)
  Receive Date: 20130823
  Receipt Date: 20131022
  Transmission Date: 20140711
  Serious: Yes (Life-Threatening, Hospitalization)
  Sender: FDA-Public Use
  Company Number: AU-AMGEN-AUSCT2013058761

PATIENT
  Age: 71 Year
  Sex: Male

DRUGS (18)
  1. PANITUMUMAB [Suspect]
     Indication: BILE DUCT CANCER
     Dosage: 890 MG, UNK
     Route: 042
     Dates: start: 20130405, end: 20130517
  2. CISPLATIN [Concomitant]
     Indication: BILE DUCT CANCER
     Dosage: 50 MG, UNK
     Route: 042
     Dates: start: 20130405
  3. GEMCITABINE [Concomitant]
     Indication: BILE DUCT CANCER
     Dosage: 2000 MG, UNK
     Route: 042
     Dates: start: 20130405
  4. METOPROLOL [Concomitant]
     Indication: HYPERTENSION
     Dosage: 100 MG, BID
     Route: 048
     Dates: start: 2008
  5. GENTAMYCIN [Concomitant]
     Indication: PROPHYLAXIS
     Dosage: 320 MG, UNK
     Route: 042
     Dates: start: 20130417, end: 20130502
  6. DOXYCYCLINE [Concomitant]
     Indication: PROPHYLAXIS
     Dosage: 100 MG, BID
     Route: 048
     Dates: start: 20130405, end: 20130501
  7. TAZOCIN [Concomitant]
     Indication: PROPHYLAXIS
     Dosage: 4.5 G, UNK
     Route: 042
     Dates: start: 20130417, end: 20130504
  8. MICARDIS [Concomitant]
     Dosage: 80 MG, BID
     Route: 048
     Dates: start: 2012
  9. HYDROCHLOROTHIAZIDE [Concomitant]
     Dosage: 6.75 MG, QD
     Route: 048
     Dates: start: 20130417, end: 20130419
  10. NILSTAT [Concomitant]
     Dosage: 1 ML, QID
     Route: 048
     Dates: start: 20130417, end: 20130501
  11. SODIUM BICARBONATE [Concomitant]
     Dosage: 20 ML, QID
     Route: 061
     Dates: start: 20130417
  12. HYDROCORTISONE [Concomitant]
     Indication: PROPHYLAXIS
     Dosage: UNK UNK, TID
     Route: 061
     Dates: start: 20130405, end: 20130501
  13. METRONIDAZOLE [Concomitant]
     Indication: PROPHYLAXIS
     Dosage: 400 MG, TID
     Route: 048
     Dates: start: 20130417, end: 20130502
  14. CEFOTAXIME [Concomitant]
     Indication: PROPHYLAXIS
     Dosage: 1 G, TID
     Route: 042
     Dates: start: 20130417, end: 20130418
  15. PANTOPRAZOLE [Concomitant]
     Dosage: 40 MG, QD
     Route: 048
     Dates: start: 20130419, end: 20130501
  16. PANADOL [Concomitant]
     Dosage: 1000 MG, UNK
     Route: 048
     Dates: start: 20130419
  17. CEFTRIAXONE [Concomitant]
     Dosage: 1 G, UNK
     Route: 042
     Dates: start: 20130419, end: 20130501
  18. AUGMENTIN DUO [Concomitant]
     Indication: PROPHYLAXIS
     Dosage: 500 MG, BID
     Route: 048
     Dates: start: 20130422, end: 201304

REACTIONS (2)
  - Cholangitis [Recovered/Resolved]
  - Malaise [Recovered/Resolved]
